FAERS Safety Report 17139195 (Version 1)
Quarter: 2019Q4

REPORT INFORMATION
  Report Type: Spontaneous
  Country: US (occurrence: US)
  Receive Date: 20191210
  Receipt Date: 20191210
  Transmission Date: 20200122
  Serious: Yes (Death)
  Sender: FDA-Public Use
  Company Number: None

PATIENT
  Age: 73 Year
  Sex: Male
  Weight: 63.99 kg

DRUGS (7)
  1. FUROSEMIDE. [Concomitant]
     Active Substance: FUROSEMIDE
  2. RYDAPT [Suspect]
     Active Substance: MIDOSTAURIN
     Indication: MYELODYSPLASTIC SYNDROME
     Route: 048
     Dates: start: 20191205
  3. VITAMIN D [Concomitant]
     Active Substance: VITAMIN D NOS
  4. KLOR-CON [Concomitant]
     Active Substance: POTASSIUM CHLORIDE
  5. PREDNISONE. [Concomitant]
     Active Substance: PREDNISONE
  6. ALLOPURINOL. [Concomitant]
     Active Substance: ALLOPURINOL
  7. CALCIUM [Concomitant]
     Active Substance: CALCIUM

REACTIONS (1)
  - Death [None]
